FAERS Safety Report 8134514-8 (Version None)
Quarter: 2012Q1

REPORT INFORMATION
  Report Type: 
  Country: None (occurrence: None)
  Receive Date: 20120214
  Receipt Date: 20120209
  Transmission Date: 20120608
  Serious: Yes (Death)
  Sender: FDA-Public Use
  Company Number: US-ELI_LILLY_AND_COMPANY-US201112007766

PATIENT
  Sex: Female

DRUGS (1)
  1. GEMZAR [Suspect]
     Indication: OVARIAN CANCER RECURRENT
     Dosage: 1800 MG, ON DAY 1 AND DAY 8, EVERY 21 DAYS
     Dates: start: 20110830, end: 20110920

REACTIONS (1)
  - NEOPLASM PROGRESSION [None]
